FAERS Safety Report 13703311 (Version 1)
Quarter: 2017Q2

REPORT INFORMATION
  Report Type: Spontaneous
  Country: US (occurrence: US)
  Receive Date: 20170629
  Receipt Date: 20170629
  Transmission Date: 20170830
  Serious: No
  Sender: FDA-Public Use
  Company Number: GXBR2017US001816

PATIENT
  Sex: Female

DRUGS (1)
  1. LORATADINE TABLETS [Suspect]
     Active Substance: LORATADINE
     Indication: PRODUCT USED FOR UNKNOWN INDICATION
     Dosage: UNK DF, QD
     Route: 065
     Dates: start: 20170516, end: 20170525

REACTIONS (2)
  - Nasal inflammation [Unknown]
  - Sinusitis [Unknown]

NARRATIVE: CASE EVENT DATE: 20170530
